FAERS Safety Report 18329978 (Version 1)
Quarter: 2020Q3

REPORT INFORMATION
  Report Type: Spontaneous
  Country: US (occurrence: US)
  Receive Date: 20200930
  Receipt Date: 20200930
  Transmission Date: 20201103
  Serious: Yes (Other)
  Sender: FDA-Public Use
  Company Number: US-PFIZER INC-2020374313

PATIENT
  Age: 46 Year
  Sex: Male

DRUGS (19)
  1. MEPERIDINE HCL [Suspect]
     Active Substance: MEPERIDINE HYDROCHLORIDE
     Indication: PAIN
     Dosage: 50 MG
     Route: 042
  2. PROMETHAZINE [Interacting]
     Active Substance: PROMETHAZINE HYDROCHLORIDE
     Indication: NAUSEA
     Dosage: 12.5 MG
     Route: 042
  3. MORPHINE SULFATE. [Concomitant]
     Active Substance: MORPHINE SULFATE
     Indication: HAEMATEMESIS
  4. RANITIDINE. [Concomitant]
     Active Substance: RANITIDINE
     Indication: PAIN
  5. PROMETHAZINE [Interacting]
     Active Substance: PROMETHAZINE HYDROCHLORIDE
     Indication: HAEMATEMESIS
     Dosage: 12.5 MG (REPEAT DOSE)
     Route: 042
  6. PROMETHAZINE [Interacting]
     Active Substance: PROMETHAZINE HYDROCHLORIDE
     Indication: PAIN
     Dosage: 12.5 MG
     Route: 042
  7. KETOROLAC [Concomitant]
     Active Substance: KETOROLAC TROMETHAMINE
     Indication: NAUSEA
     Dosage: 30 MG
     Route: 042
  8. KETOROLAC [Concomitant]
     Active Substance: KETOROLAC TROMETHAMINE
     Indication: HAEMATEMESIS
  9. RANITIDINE. [Concomitant]
     Active Substance: RANITIDINE
     Indication: HAEMATEMESIS
  10. CEFOTAXIME [Concomitant]
     Active Substance: CEFOTAXIME SODIUM
     Indication: DIVERTICULITIS
     Dosage: 2 G, Q8H
     Route: 042
  11. PERCOCET [OXYCODONE HYDROCHLORIDE;OXYCODONE TEREPHTHALATE;PARACETAMOL] [Concomitant]
     Active Substance: ACETAMINOPHEN\OXYCODONE HYDROCHLORIDE\OXYCODONE TEREPHTHALATE
     Indication: PAIN
     Dosage: UNK
  12. LORTAB [Concomitant]
     Active Substance: ACETAMINOPHEN\HYDROCODONE BITARTRATE
     Indication: PAIN
     Dosage: UNK
  13. MEPERIDINE HCL [Interacting]
     Active Substance: MEPERIDINE HYDROCHLORIDE
     Indication: DIVERTICULITIS
     Dosage: 10 MG (PCA 10 MG WITH A 6?MINUTE LOCKOUT AND A MAXIMUM OF 150 MG IN 4 HOURS)
  14. KETOROLAC [Concomitant]
     Active Substance: KETOROLAC TROMETHAMINE
     Indication: PAIN
  15. METRONIDAZOLE. [Concomitant]
     Active Substance: METRONIDAZOLE
     Indication: DIVERTICULITIS
     Dosage: 500 MG, Q6H
     Route: 042
  16. MEPERIDINE HCL [Interacting]
     Active Substance: MEPERIDINE HYDROCHLORIDE
     Dosage: 20 MG (20 MG WITH A 6?MINUTE LOCKOUT AND A MAXIMUM OF 200 MG IN 4 HOURS)
  17. MORPHINE SULFATE. [Concomitant]
     Active Substance: MORPHINE SULFATE
     Indication: NAUSEA
     Dosage: 4 MG
     Route: 042
  18. MORPHINE SULFATE. [Concomitant]
     Active Substance: MORPHINE SULFATE
     Indication: PAIN
  19. RANITIDINE. [Concomitant]
     Active Substance: RANITIDINE
     Indication: NAUSEA
     Dosage: 50 MG
     Route: 042

REACTIONS (3)
  - Drug interaction [Unknown]
  - Drug ineffective [Unknown]
  - Generalised tonic-clonic seizure [Recovered/Resolved]
